FAERS Safety Report 23130543 (Version 1)
Quarter: 2023Q4

REPORT INFORMATION
  Report Type: Spontaneous
  Country: IT (occurrence: IT)
  Receive Date: 20231031
  Receipt Date: 20231031
  Transmission Date: 20240109
  Serious: Yes (Death, Hospitalization, Other)
  Sender: FDA-Public Use
  Company Number: IT-SUN PHARMACEUTICAL INDUSTRIES LTD-2023R1-415203

PATIENT
  Age: 63 Year
  Sex: Male

DRUGS (2)
  1. CARBOPLATIN [Suspect]
     Active Substance: CARBOPLATIN
     Indication: Basal cell carcinoma
     Dosage: 5 MG PER MILLILITRE PER MINUTE
     Route: 065
  2. CABAZITAXEL [Suspect]
     Active Substance: CABAZITAXEL
     Indication: Basal cell carcinoma
     Dosage: 20 MG/MQ EVERY 21 DAYS
     Route: 065

REACTIONS (6)
  - Disease progression [Fatal]
  - Acute kidney injury [Unknown]
  - Disease progression [Unknown]
  - Hydronephrosis [Unknown]
  - Sepsis [Unknown]
  - Klebsiella infection [Unknown]
